FAERS Safety Report 8278029-5 (Version None)
Quarter: 2012Q2

REPORT INFORMATION
  Report Type: 
  Country: None (occurrence: None)
  Receive Date: 20120412
  Receipt Date: 20120404
  Transmission Date: 20120825
  Serious: Yes (Hospitalization)
  Sender: FDA-Public Use
  Company Number: SK-ROCHE-1057017

PATIENT
  Age: 77 Year
  Sex: Male

DRUGS (1)
  1. VEMURAFENIB [Suspect]
     Indication: MALIGNANT MELANOMA
     Dosage: TEMPORARILY INTERRUPTED
     Route: 048
     Dates: start: 20120202, end: 20120403

REACTIONS (1)
  - ENCEPHALOPATHY [None]
